FAERS Safety Report 25492243 (Version 1)
Quarter: 2025Q2

REPORT INFORMATION
  Report Type: Spontaneous
  Country: LY (occurrence: LY)
  Receive Date: 20250630
  Receipt Date: 20250630
  Transmission Date: 20250717
  Serious: Yes (Life-Threatening)
  Sender: SAREPTA THERAPEUTICS
  Company Number: LY-SAREPTA THERAPEUTICS INC.-SRP2025-006145

PATIENT

DRUGS (1)
  1. VYONDYS 53 [Suspect]
     Active Substance: GOLODIRSEN
     Indication: Duchenne muscular dystrophy
     Route: 042

REACTIONS (2)
  - Chest discomfort [Unknown]
  - Tachycardia [Unknown]
